FAERS Safety Report 7344599-4 (Version None)
Quarter: 2011Q1

REPORT INFORMATION
  Report Type: 
  Country: None (occurrence: None)
  Receive Date: 20110310
  Receipt Date: 20110301
  Transmission Date: 20110831
  Serious: Yes (Hospitalization)
  Sender: FDA-Public Use
  Company Number: CA-JNJFOC-20110301735

PATIENT
  Sex: Male
  Weight: 87.6 kg

DRUGS (7)
  1. REMICADE [Suspect]
     Indication: CROHN'S DISEASE
     Dosage: PATIENT HAS HAD 57 INFUSIONS
     Route: 042
  2. SLOW-K [Concomitant]
  3. CILAZAPRIL [Concomitant]
  4. SYMBICORT [Concomitant]
  5. ADALAT [Concomitant]
  6. ALLOPURINOL [Concomitant]
  7. ZOPICLONE [Concomitant]

REACTIONS (2)
  - VOMITING [None]
  - PAIN [None]
